FAERS Safety Report 13474182 (Version 15)
Quarter: 2019Q4

REPORT INFORMATION
  Report Type: Report from Study
  Country: CA (occurrence: CA)
  Receive Date: 20170424
  Receipt Date: 20191218
  Transmission Date: 20200122
  Serious: Yes (Hospitalization, Disabling, Other)
  Sender: FDA-Public Use
  Company Number: CA-SA-2017SA062660

PATIENT
  Age: 42 Year
  Sex: Female

DRUGS (16)
  1. TOVIAZ [Concomitant]
     Active Substance: FESOTERODINE FUMARATE
     Dosage: UNK UNK,QD
     Route: 048
  2. TYLENOL [Concomitant]
     Active Substance: ACETAMINOPHEN
     Indication: PREMEDICATION
     Dosage: UNK UNK, PRN
     Dates: start: 20170404
  3. ACICLOVIR [Concomitant]
     Active Substance: ACYCLOVIR
     Indication: PREMEDICATION
     Dosage: 200 MG,BID
     Route: 048
     Dates: start: 20170404
  4. ALEMTUZUMAB [Suspect]
     Active Substance: ALEMTUZUMAB
     Indication: RELAPSING-REMITTING MULTIPLE SCLEROSIS
     Dosage: 12 MG,QD
     Route: 041
     Dates: start: 20170404, end: 20170406
  5. METHYLPREDNISOLONE. [Suspect]
     Active Substance: METHYLPREDNISOLONE
     Indication: PREMEDICATION
     Dosage: 1 G,UNK
     Route: 042
     Dates: start: 20170404, end: 20170406
  6. GRAVOL [Suspect]
     Active Substance: DIMENHYDRINATE
     Indication: PREMEDICATION
     Dosage: 50 MG,UNK
     Route: 042
     Dates: start: 20170404, end: 20170406
  7. SYNTHROID [Concomitant]
     Active Substance: LEVOTHYROXINE SODIUM
     Dosage: DOSE DECRESED TO UNKNOWN AMOUNT
     Route: 048
  8. REACTINE [CETIRIZINE HYDROCHLORIDE] [Concomitant]
     Active Substance: CETIRIZINE HYDROCHLORIDE
     Indication: PREMEDICATION
     Dosage: 10 MG,UNK
     Route: 048
     Dates: start: 20170404, end: 20170406
  9. GABAPENTIN. [Concomitant]
     Active Substance: GABAPENTIN
     Dosage: UNK UNK,QD
     Route: 048
  10. CYCLOBENZAPRINE. [Concomitant]
     Active Substance: CYCLOBENZAPRINE
     Dosage: UNK UNK, UNK
     Route: 048
  11. DIPHENHYDRAMINE HYDROCHLORIDE. [Suspect]
     Active Substance: DIPHENHYDRAMINE HYDROCHLORIDE
     Indication: PREMEDICATION
     Dosage: 50 MG,UNK
     Route: 042
     Dates: start: 20170404, end: 20170406
  12. SYNTHROID [Concomitant]
     Active Substance: LEVOTHYROXINE SODIUM
     Dosage: 150 UG, QD
     Route: 048
  13. RANITIDINE. [Concomitant]
     Active Substance: RANITIDINE
     Indication: PREMEDICATION
     Dosage: 150 MG,UNK
     Route: 048
     Dates: start: 20170404, end: 20170406
  14. ERGOCALCIFEROL. [Concomitant]
     Active Substance: ERGOCALCIFEROL
     Dosage: UNK UNK,QD
     Route: 048
  15. CURCUMA LONGA [Concomitant]
     Active Substance: HERBALS\TURMERIC
     Dosage: UNK
     Route: 048
  16. SYNTHROID [Concomitant]
     Active Substance: LEVOTHYROXINE SODIUM
     Dosage: 112.5 UG, QD
     Route: 048

REACTIONS (52)
  - Thrombosis [Unknown]
  - Dysphonia [Unknown]
  - Swelling face [Recovered/Resolved]
  - General physical health deterioration [Not Recovered/Not Resolved]
  - Eyelid oedema [Not Recovered/Not Resolved]
  - Skin discolouration [Unknown]
  - Arthralgia [Unknown]
  - Myalgia [Unknown]
  - Migraine [Recovered/Resolved]
  - Rash [Recovered/Resolved]
  - Fatigue [Not Recovered/Not Resolved]
  - Impaired driving ability [Not Recovered/Not Resolved]
  - Immune thrombocytopenic purpura [Not Recovered/Not Resolved]
  - Increased tendency to bruise [Unknown]
  - Oral mucosal blistering [Unknown]
  - Pain [Not Recovered/Not Resolved]
  - Basedow^s disease [Unknown]
  - Temperature intolerance [Unknown]
  - Insomnia [Unknown]
  - Emotional disorder [Not Recovered/Not Resolved]
  - Petechiae [Unknown]
  - Fibula fracture [Recovering/Resolving]
  - Gait disturbance [Not Recovered/Not Resolved]
  - Muscular weakness [Unknown]
  - Pyrexia [Recovered/Resolved]
  - Fall [Recovered/Resolved]
  - Balance disorder [Not Recovered/Not Resolved]
  - Pruritus [Recovered/Resolved]
  - Weight bearing difficulty [Recovering/Resolving]
  - Swelling face [Unknown]
  - Gait disturbance [Recovered/Resolved]
  - Headache [Recovered/Resolved]
  - Eye swelling [Not Recovered/Not Resolved]
  - Thyroid function test abnormal [Not Recovered/Not Resolved]
  - Platelet count decreased [Unknown]
  - Hemiparesis [Recovered/Resolved]
  - Walking aid user [Not Recovered/Not Resolved]
  - Autoimmune thyroiditis [Unknown]
  - Fatigue [Unknown]
  - Dry skin [Unknown]
  - Dizziness [Recovered/Resolved]
  - Tachycardia [Recovered/Resolved]
  - Fall [Unknown]
  - Infusion site pruritus [Recovered/Resolved]
  - Asthenia [Not Recovered/Not Resolved]
  - Blood thyroid stimulating hormone decreased [Recovered/Resolved]
  - Body temperature increased [Recovered/Resolved]
  - Depression [Unknown]
  - Hypotension [Recovered/Resolved]
  - Visual impairment [Not Recovered/Not Resolved]
  - Eye disorder [Not Recovered/Not Resolved]
  - Anxiety [Not Recovered/Not Resolved]

NARRATIVE: CASE EVENT DATE: 20170404
